FAERS Safety Report 21871003 (Version 1)
Quarter: 2023Q1

REPORT INFORMATION
  Report Type: Spontaneous
  Country: PT (occurrence: PT)
  Receive Date: 20230117
  Receipt Date: 20230117
  Transmission Date: 20230418
  Serious: Yes (Other)
  Sender: FDA-Public Use
  Company Number: PT-Accord-295669

PATIENT
  Age: 21 Year
  Sex: Female

DRUGS (1)
  1. CISPLATIN [Suspect]
     Active Substance: CISPLATIN
     Indication: Aesthesioneuroblastoma
     Dosage: 100 MG/M2 EVERY 21 DAYS

REACTIONS (8)
  - Mucosal inflammation [Unknown]
  - Nephropathy toxic [Unknown]
  - Neuropathy peripheral [Unknown]
  - Chronic kidney disease [Unknown]
  - Nausea [Unknown]
  - Vomiting [Unknown]
  - Dermatitis [Unknown]
  - Off label use [Unknown]
